FAERS Safety Report 4670297-1 (Version None)
Quarter: 2005Q2

REPORT INFORMATION
  Report Type: 
  Country: None (occurrence: None)
  Receive Date: 20050520
  Receipt Date: 20050511
  Transmission Date: 20051028
  Serious: Yes (Hospitalization)
  Sender: FDA-Public Use
  Company Number: STA-AE-05-013

PATIENT
  Age: 25 Year
  Sex: Male

DRUGS (2)
  1. PYRAZINAMIDE [Suspect]
     Indication: TUBERCULOSIS PROPHYLAXIS
     Dates: start: 20021001
  2. RIFAMPIN [Suspect]
     Indication: TUBERCULOSIS PROPHYLAXIS
     Dates: start: 20021001

REACTIONS (19)
  - ABDOMINAL PAIN UPPER [None]
  - ABDOMINAL TENDERNESS [None]
  - ANOREXIA [None]
  - ANTI-THYROID ANTIBODY POSITIVE [None]
  - ANTINUCLEAR ANTIBODY POSITIVE [None]
  - AUTOIMMUNE HEPATITIS [None]
  - BLOOD THYROID STIMULATING HORMONE DECREASED [None]
  - EOSINOPHIL COUNT INCREASED [None]
  - FATIGUE [None]
  - INCREASED APPETITE [None]
  - INSOMNIA [None]
  - INTERNATIONAL NORMALISED RATIO INCREASED [None]
  - PALPITATIONS [None]
  - PYREXIA [None]
  - SMOOTH MUSCLE ANTIBODY POSITIVE [None]
  - THYROIDITIS [None]
  - THYROXINE FREE DECREASED [None]
  - TRI-IODOTHYRONINE INCREASED [None]
  - WEIGHT DECREASED [None]
